FAERS Safety Report 9367583 (Version 1)
Quarter: 2013Q2

REPORT INFORMATION
  Report Type: Spontaneous
  Country: US (occurrence: US)
  Receive Date: 20130625
  Receipt Date: 20130625
  Transmission Date: 20140414
  Serious: No
  Sender: FDA-Public Use
  Company Number: US-ASTELLAS-2012US006064

PATIENT
  Age: 72 Year
  Sex: Female
  Weight: 61 kg

DRUGS (6)
  1. VESICARE [Suspect]
     Indication: HYPERTONIC BLADDER
     Dosage: 5 MG, UID/QD
     Route: 048
     Dates: start: 20120706, end: 20120709
  2. CELEBREX [Concomitant]
     Indication: PRODUCT USED FOR UNKNOWN INDICATION
     Dosage: 200 MG, UID/QD
     Route: 048
  3. ASPIRIN [Concomitant]
     Indication: ANTICOAGULANT THERAPY
     Dosage: 81 MG, UID/QD
     Route: 048
  4. CARVEDILOL [Concomitant]
     Indication: BLOOD PRESSURE
     Dosage: 12.5 MG, BID
     Route: 048
  5. HYDROCODONE W/ACETAMINOPHEN [Concomitant]
     Indication: PAIN
     Dosage: 1 ONCE TO THREE, UNKNOWN/D
     Route: 048
  6. NOVO-GABAPENTIN [Concomitant]
     Indication: PRODUCT USED FOR UNKNOWN INDICATION
     Dosage: 100 MG, TID
     Route: 048

REACTIONS (6)
  - Drug ineffective [Unknown]
  - Incontinence [Unknown]
  - Abdominal discomfort [Unknown]
  - Micturition urgency [Unknown]
  - Nausea [Unknown]
  - Pollakiuria [Unknown]
